FAERS Safety Report 6760551-1 (Version None)
Quarter: 2010Q2

REPORT INFORMATION
  Report Type: 
  Country: None (occurrence: None)
  Receive Date: 20100608
  Receipt Date: 20100524
  Transmission Date: 20101027
  Serious: Yes (Other)
  Sender: FDA-Public Use
  Company Number: IT-SANOFI-AVENTIS-2010SA018793

PATIENT
  Age: 52 Year
  Sex: Male

DRUGS (6)
  1. ELOXATIN [Suspect]
     Route: 042
     Dates: start: 20091229, end: 20091229
  2. ELOXATIN [Suspect]
     Route: 042
     Dates: start: 20100309, end: 20100309
  3. AVASTIN [Suspect]
     Route: 042
     Dates: start: 20100223, end: 20100223
  4. AVASTIN [Suspect]
     Route: 042
     Dates: start: 20100309, end: 20100309
  5. FLUOROURACIL [Suspect]
     Route: 042
     Dates: start: 20091229, end: 20091229
  6. FLUOROURACIL [Suspect]
     Route: 042
     Dates: start: 20100309, end: 20100309

REACTIONS (2)
  - HYPERTENSIVE CRISIS [None]
  - PROTEINURIA [None]
